FAERS Safety Report 15192253 (Version 1)
Quarter: 2018Q3

REPORT INFORMATION
  Report Type: Spontaneous
  Country: FR (occurrence: FR)
  Receive Date: 20180724
  Receipt Date: 20180724
  Transmission Date: 20181010
  Serious: Yes (Other)
  Sender: FDA-Public Use
  Company Number: FR-SHIRE-FR201827032

PATIENT

DRUGS (5)
  1. RITUXIMAB. [Suspect]
     Active Substance: RITUXIMAB
     Indication: LYMPHADENOPATHY
     Dosage: EVERY 2 MONTHS
     Route: 065
     Dates: start: 201512, end: 201610
  2. 476 (MESALAZINE/MESALAMINE) [Suspect]
     Active Substance: MESALAMINE
     Indication: KAPOSI^S SARCOMA
  3. RITUXIMAB. [Suspect]
     Active Substance: RITUXIMAB
     Dosage: UNK
     Route: 065
     Dates: start: 201506, end: 201512
  4. BENDAMUSTINE [Suspect]
     Active Substance: BENDAMUSTINE
     Indication: LYMPHADENOPATHY
     Dosage: UNK
     Route: 065
     Dates: start: 201506
  5. 476 (MESALAZINE/MESALAMINE) [Suspect]
     Active Substance: MESALAMINE
     Indication: COLITIS ULCERATIVE
     Dosage: 2 G, 1X/DAY:QD
     Route: 065
     Dates: start: 201609

REACTIONS (3)
  - Incorrect dose administered [Unknown]
  - Drug prescribing error [Unknown]
  - Acute lung injury [Unknown]
